FAERS Safety Report 5690079-1 (Version None)
Quarter: 2008Q1

REPORT INFORMATION
  Report Type: 
  Country: None (occurrence: None)
  Receive Date: 20080331
  Receipt Date: 20080331
  Transmission Date: 20080703
  Serious: Yes (Other)
  Sender: FDA-Public Use
  Company Number: None

PATIENT
  Age: 43 Year
  Sex: Female
  Weight: 79.3795 kg

DRUGS (1)
  1. BIAXIN [Suspect]
     Indication: SINUSITIS
     Dosage: 500MG BID PO
     Route: 048
     Dates: start: 20080228, end: 20080309

REACTIONS (25)
  - ABDOMINAL DISTENSION [None]
  - ABNORMAL BEHAVIOUR [None]
  - ANHEDONIA [None]
  - ANOREXIA [None]
  - ANXIETY [None]
  - DEFAECATION URGENCY [None]
  - DIARRHOEA [None]
  - DISTURBANCE IN ATTENTION [None]
  - DYSGEUSIA [None]
  - FEAR [None]
  - FEELING OF DESPAIR [None]
  - FLAT AFFECT [None]
  - FLATULENCE [None]
  - HEADACHE [None]
  - INSOMNIA [None]
  - MAJOR DEPRESSION [None]
  - MALAISE [None]
  - MUSCLE SPASMS [None]
  - NAUSEA [None]
  - NIGHTMARE [None]
  - PAIN [None]
  - STOMACH DISCOMFORT [None]
  - SUICIDAL IDEATION [None]
  - TEARFULNESS [None]
  - THINKING ABNORMAL [None]
